FAERS Safety Report 12195159 (Version 1)
Quarter: 2016Q1

REPORT INFORMATION
  Report Type: Spontaneous
  Country: US (occurrence: None)
  Receive Date: 20160318
  Receipt Date: 20160318
  Transmission Date: 20160526
  Serious: Yes (Hospitalization)
  Sender: FDA-Public Use
  Company Number: None

PATIENT
  Age: 18 Year
  Sex: Female
  Weight: 41.2 kg

DRUGS (5)
  1. VINCRISTINE SULFATE. [Suspect]
     Active Substance: VINCRISTINE SULFATE
     Dates: start: 20160212
  2. CYTARABINE. [Suspect]
     Active Substance: CYTARABINE
     Dosage: IT ARA C GIVEN AT DAY 0 OF STUDY START, 02/12/2016
     Dates: end: 20160216
  3. DAUNORUBICIN [Suspect]
     Active Substance: DAUNORUBICIN
     Dosage: 145 MG TOTAL DOSE ADMINISTERED, 4 DOSES TOTAL GIVEN THIS CYCLE
     Dates: end: 20160304
  4. PREDNISONE. [Suspect]
     Active Substance: PREDNISONE
     Dosage: TOTAL DOSE ADMINISTERED 2610 MG; 45 MG BID PREDNISONE GIVEN DAY 1-29
     Dates: end: 20160311
  5. ONCASPAR [Suspect]
     Active Substance: PEGASPARGASE
     Dates: end: 20160216

REACTIONS (5)
  - Pseudomonas infection [None]
  - Pneumonia fungal [None]
  - Pleural effusion [None]
  - Respiratory distress [None]
  - Soft tissue infection [None]

NARRATIVE: CASE EVENT DATE: 20160308
